FAERS Safety Report 8158404-X (Version None)
Quarter: 2012Q1

REPORT INFORMATION
  Report Type: 
  Country: None (occurrence: None)
  Receive Date: 20120223
  Receipt Date: 20120215
  Transmission Date: 20120608
  Serious: Yes (Hospitalization, Other)
  Sender: FDA-Public Use
  Company Number: US-BAYER-201023414NA

PATIENT
  Age: 29 Year
  Sex: Female
  Weight: 63 kg

DRUGS (18)
  1. TUSSIONEX [Concomitant]
  2. ANTIMIGRAINE PREPARATIONS [Concomitant]
  3. AUGMENTIN '125' [Concomitant]
     Dosage: 875 MG, BID
     Dates: start: 20090420
  4. DARVOCET [Concomitant]
     Indication: PAIN
     Dosage: UNK
     Dates: start: 20090423
  5. BIAXIN [Concomitant]
     Indication: SINUSITIS
     Dosage: UNK
     Dates: start: 20090414
  6. LEVAQUIN [Concomitant]
     Dosage: 500 MG, QD
     Dates: start: 20090423
  7. DROSPIRENONE AND ETHINYL ESTRADIOL [Suspect]
     Indication: CONTRACEPTION
     Dosage: UNK UNK, UNK
     Route: 048
     Dates: start: 20090101, end: 20090515
  8. DROSPIRENONE AND ETHINYL ESTRADIOL [Suspect]
     Indication: PREMENSTRUAL SYNDROME
  9. ANTI-ASTHMATICS [Concomitant]
  10. ANTIBIOTICS [Concomitant]
  11. FLUOXETINE [Concomitant]
     Indication: DEPRESSION
     Dosage: UNK
     Dates: start: 20090101, end: 20090201
  12. IBUPROFEN [Concomitant]
     Indication: PAIN
     Dosage: UNK
     Dates: start: 20090414
  13. ADVAIR DISKUS 100/50 [Concomitant]
     Dosage: UNK UNK, BID
     Dates: start: 20090423
  14. ARMODAFINIL [Concomitant]
     Dosage: 100 MG, UNK
     Dates: start: 20090430
  15. DROSPIRENONE AND ETHINYL ESTRADIOL [Suspect]
     Indication: ACNE
  16. YASMIN [Suspect]
  17. NSAID'S [Concomitant]
  18. ACIPHEX [Concomitant]
     Indication: DYSPEPSIA
     Dosage: UNK UNK, BID
     Dates: start: 20090423

REACTIONS (3)
  - EMOTIONAL DISTRESS [None]
  - PULMONARY EMBOLISM [None]
  - DEEP VEIN THROMBOSIS [None]
